FAERS Safety Report 6229756-2 (Version None)
Quarter: 2009Q2

REPORT INFORMATION
  Report Type: 
  Country: None (occurrence: None)
  Receive Date: 20090615
  Receipt Date: 20090603
  Transmission Date: 20091009
  Serious: Yes (Hospitalization, Other)
  Sender: FDA-Public Use
  Company Number: PHHY2009JP21960

PATIENT
  Age: 75 Year
  Sex: Female

DRUGS (2)
  1. DIOVAN [Suspect]
     Indication: HYPERTENSION
     Dosage: 40 MG, UNK
     Route: 048
     Dates: start: 20090601, end: 20090602
  2. ATELEC [Suspect]
     Indication: HYPERTENSION
     Dosage: UNK
     Dates: start: 20090601, end: 20090602

REACTIONS (2)
  - PHARYNGEAL OEDEMA [None]
  - WHEEZING [None]
